FAERS Safety Report 23624948 (Version 2)
Quarter: 2025Q2

REPORT INFORMATION
  Report Type: Spontaneous
  Country: US (occurrence: US)
  Receive Date: 20240313
  Receipt Date: 20250403
  Transmission Date: 20250716
  Serious: Yes (Hospitalization, Other)
  Sender: AMGEN
  Company Number: US-AMGEN-USASP2024047793

PATIENT

DRUGS (5)
  1. BEVACIZUMAB [Suspect]
     Active Substance: BEVACIZUMAB
     Indication: Colorectal cancer metastatic
     Dosage: EVERY 2 WEEKS, FOR A TOTAL OF UP TO 8 CYCLES
     Route: 065
  2. FLUOROURACIL\LEUCOVORIN CALCIUM\OXALIPLATIN [Suspect]
     Active Substance: FLUOROURACIL\LEUCOVORIN CALCIUM\OXALIPLATIN
     Indication: Colorectal cancer metastatic
     Route: 065
  3. RILUZOLE [Suspect]
     Active Substance: RILUZOLE
     Indication: Colorectal cancer metastatic
     Dosage: 50 MILLIGRAM, BID
     Route: 065
  4. RILUZOLE [Suspect]
     Active Substance: RILUZOLE
     Dosage: 100 MILLIGRAM, BID
     Route: 065
  5. RILUZOLE [Suspect]
     Active Substance: RILUZOLE
     Dosage: 50 MILLIGRAM, QD, 8 CYCLES, FOR 16 WEEKS
     Route: 065

REACTIONS (36)
  - Colorectal cancer metastatic [Unknown]
  - Lymphopenia [Unknown]
  - Neutropenia [Unknown]
  - Abdominal pain [Unknown]
  - Abdominal abscess [Unknown]
  - Hypokalaemia [Unknown]
  - Lymphocyte count decreased [Unknown]
  - Platelet count decreased [Unknown]
  - Aspartate aminotransferase increased [Unknown]
  - General physical health deterioration [Unknown]
  - Fatigue [Unknown]
  - Decreased appetite [Unknown]
  - Diarrhoea [Unknown]
  - Nausea [Unknown]
  - Headache [Unknown]
  - Hyperglycaemia [Unknown]
  - Vomiting [Unknown]
  - Weight decreased [Unknown]
  - Constipation [Unknown]
  - Alanine aminotransferase increased [Unknown]
  - Blood alkaline phosphatase increased [Unknown]
  - Anaemia [Unknown]
  - Hypoalbuminaemia [Unknown]
  - Back pain [Unknown]
  - Paraesthesia [Unknown]
  - Cough [Unknown]
  - Muscular weakness [Unknown]
  - Myalgia [Unknown]
  - Dysgeusia [Unknown]
  - Peripheral sensory neuropathy [Unknown]
  - Insomnia [Unknown]
  - Dyspnoea [Unknown]
  - Nasal congestion [Unknown]
  - Dry skin [Unknown]
  - Therapy partial responder [Unknown]
  - Therapeutic product effect incomplete [Unknown]
